FAERS Safety Report 4626252-0 (Version None)
Quarter: 2005Q2

REPORT INFORMATION
  Report Type: 
  Country: None (occurrence: None)
  Receive Date: 20050331
  Receipt Date: 20040701
  Transmission Date: 20051028
  Serious: Yes (Hospitalization)
  Sender: FDA-Public Use
  Company Number: 200413285BCC

PATIENT
  Age: 15 Year
  Sex: Female
  Weight: 49.8957 kg

DRUGS (2)
  1. ALEVE [Suspect]
     Dosage: ONCE, ORAL
     Route: 048
     Dates: start: 20040701
  2. ADVIL [Suspect]
     Dosage: ONCE, ORAL
     Route: 048
     Dates: start: 20040701

REACTIONS (1)
  - SOMNOLENCE [None]
